FAERS Safety Report 4990351-4 (Version None)
Quarter: 2006Q2

REPORT INFORMATION
  Report Type: 
  Country: None (occurrence: None)
  Receive Date: 20060427
  Receipt Date: 20060414
  Transmission Date: 20061013
  Serious: Yes (Hospitalization, Other)
  Sender: FDA-Public Use
  Company Number: 02100-JPN-06-0149

PATIENT
  Age: 92 Year
  Sex: Male

DRUGS (15)
  1. CILOSTAZOL [Suspect]
     Indication: CEREBRAL INFARCTION
     Dosage: SEE IMAGE
     Route: 048
     Dates: start: 20041101, end: 20050222
  2. CILOSTAZOL [Suspect]
     Indication: CEREBRAL INFARCTION
     Dosage: SEE IMAGE
     Route: 048
     Dates: start: 20050401, end: 20060201
  3. ASPIRIN [Suspect]
     Indication: MYOCARDIAL INFARCTION
     Dosage: 100 MG
     Route: 048
     Dates: end: 20060201
  4. TICLOPIDINE HYDROCHLORIDE [Suspect]
     Indication: MYOCARDIAL INFARCTION
     Dosage: 200 MG
     Route: 048
     Dates: end: 20060201
  5. REBAMIPIDE [Concomitant]
  6. VALSARTAN [Concomitant]
  7. ISOSORBIDE MONONITRATE [Concomitant]
  8. NICORANDIL [Concomitant]
  9. NICERGOLINE [Concomitant]
  10. POVIDONE IODINE [Concomitant]
  11. ALLOPURINOL [Concomitant]
  12. RANITIDINE HYDROCHLORIDE [Concomitant]
  13. LEVOTHYROXINE SODIUM [Concomitant]
  14. MAGNESIUM OXIDE [Concomitant]
  15. BENIDIPINE HYDROCHLORIDE [Concomitant]

REACTIONS (2)
  - CEREBELLAR HAEMORRHAGE [None]
  - FALL [None]
